FAERS Safety Report 10331532 (Version 2)
Quarter: 2014Q3

REPORT INFORMATION
  Report Type: Report from Study
  Country: DE (occurrence: DE)
  Receive Date: 20140722
  Receipt Date: 20140722
  Transmission Date: 20150326
  Serious: Yes (Other)
  Sender: FDA-Public Use
  Company Number: PHHY2014DE019736

PATIENT
  Sex: Male

DRUGS (2)
  1. EXTAVIA [Suspect]
     Active Substance: INTERFERON BETA-1B
     Indication: MULTIPLE SCLEROSIS
     Dosage: 125 UG, QOD
     Route: 058
     Dates: start: 20140205
  2. EXTAVIA [Suspect]
     Active Substance: INTERFERON BETA-1B
     Dosage: 250 UG, QOD
     Route: 058

REACTIONS (4)
  - Rash [Recovered/Resolved]
  - Dizziness [Recovered/Resolved]
  - Colorectal cancer [Unknown]
  - Erythema [Recovered/Resolved]

NARRATIVE: CASE EVENT DATE: 20140213
